FAERS Safety Report 10226061 (Version 1)
Quarter: 2014Q2

REPORT INFORMATION
  Report Type: Spontaneous
  Country: US (occurrence: US)
  Receive Date: 20140609
  Receipt Date: 20140609
  Transmission Date: 20141212
  Serious: No
  Sender: FDA-Public Use
  Company Number: US-ASTELLAS-2014US003115

PATIENT
  Age: 79 Year
  Sex: Male

DRUGS (2)
  1. XTANDI [Suspect]
     Indication: PROSTATE CANCER
     Dosage: 160 MG, DAILY
     Route: 048
     Dates: start: 20131029, end: 201312
  2. XTANDI [Suspect]
     Dosage: 160 MG, DAILY
     Route: 048
     Dates: start: 201401, end: 20140220

REACTIONS (3)
  - Photosensitivity reaction [Unknown]
  - Rash [Unknown]
  - Oedema peripheral [Unknown]
